FAERS Safety Report 16099693 (Version 1)
Quarter: 2019Q1

REPORT INFORMATION
  Report Type: Spontaneous
  Country: US (occurrence: US)
  Receive Date: 20190321
  Receipt Date: 20190321
  Transmission Date: 20190418
  Serious: No
  Sender: FDA-Public Use
  Company Number: US-TEVA-2019-US-1018830

PATIENT
  Age: 65 Year
  Sex: Male

DRUGS (2)
  1. PLENDIL [Suspect]
     Active Substance: FELODIPINE
     Route: 065
  2. DOXAZOSIN [Suspect]
     Active Substance: DOXAZOSIN\DOXAZOSIN MESYLATE
     Indication: BENIGN PROSTATIC HYPERPLASIA
     Dosage: 6 MILLIGRAM DAILY; ONE 2MG AND ONE 4MG TABLET
     Route: 065

REACTIONS (2)
  - Noninfective gingivitis [Recovering/Resolving]
  - Product substitution issue [Unknown]
